FAERS Safety Report 7689919-6 (Version None)
Quarter: 2011Q3

REPORT INFORMATION
  Report Type: 
  Country: None (occurrence: None)
  Receive Date: 20110818
  Receipt Date: 20110812
  Transmission Date: 20111222
  Serious: No
  Sender: FDA-Public Use
  Company Number: US-BIOGENIDEC-2011BI029210

PATIENT
  Age: 45 Year
  Sex: Female

DRUGS (1)
  1. TYSABRI [Suspect]
     Indication: MULTIPLE SCLEROSIS
     Route: 042
     Dates: start: 20110127

REACTIONS (6)
  - FEELING ABNORMAL [None]
  - HYPOAESTHESIA ORAL [None]
  - INSOMNIA [None]
  - GENERAL SYMPTOM [None]
  - GAIT DISTURBANCE [None]
  - DIZZINESS [None]
